FAERS Safety Report 9627540 (Version 1)
Quarter: 2013Q4

REPORT INFORMATION
  Report Type: Not Available
  Country: US (occurrence: US)
  Receive Date: 20131016
  Receipt Date: 20131016
  Transmission Date: 20140711
  Serious: No
  Sender: FDA-Public Use
  Company Number: US-LUNDBECK-DKLU1089427

PATIENT
  Age: 4 Year
  Sex: Male

DRUGS (7)
  1. SABRIL (FOR ORAL SOLUTION) [Suspect]
     Indication: INFANTILE SPASMS
     Route: 048
     Dates: start: 20091229
  2. SABRIL (FOR ORAL SOLUTION) [Suspect]
     Indication: TUBEROUS SCLEROSIS
     Route: 048
     Dates: start: 20091229
  3. SABRIL (FOR ORAL SOLUTION) [Suspect]
     Route: 048
     Dates: start: 20091229
  4. DEPAKOTE [Concomitant]
     Indication: PRODUCT USED FOR UNKNOWN INDICATION
  5. LEVETIRACETAM [Concomitant]
     Indication: PRODUCT USED FOR UNKNOWN INDICATION
  6. PRELONE [Concomitant]
     Indication: PRODUCT USED FOR UNKNOWN INDICATION
  7. VITAMIN B6 [Concomitant]
     Indication: PRODUCT USED FOR UNKNOWN INDICATION

REACTIONS (2)
  - Influenza [Unknown]
  - Ear infection [Unknown]
